FAERS Safety Report 21828378 (Version 2)
Quarter: 2024Q1

REPORT INFORMATION
  Report Type: Spontaneous
  Country: ES (occurrence: ES)
  Receive Date: 20230106
  Receipt Date: 20240104
  Transmission Date: 20240410
  Serious: Yes (Other)
  Sender: FDA-Public Use
  Company Number: ES-AEMPS-1305418

PATIENT
  Age: 77 Year
  Sex: Male

DRUGS (4)
  1. ERLOTINIB [Suspect]
     Active Substance: ERLOTINIB
     Indication: Lung adenocarcinoma
     Dosage: UNK
     Route: 048
     Dates: start: 20190321
  2. TAMSULOSIN HYDROCHLORIDE [Concomitant]
     Active Substance: TAMSULOSIN HYDROCHLORIDE
     Indication: Benign prostatic hyperplasia
     Dosage: UNK
     Route: 048
  3. LISINOPRIL [Concomitant]
     Active Substance: LISINOPRIL
     Indication: Hypertension
     Dosage: UNK
     Route: 048
  4. METAMIZOLE MAGNESIUM [Concomitant]
     Active Substance: METAMIZOLE MAGNESIUM
     Indication: Pain
     Dosage: UNK
     Route: 048

REACTIONS (2)
  - Conjunctivitis [Recovering/Resolving]
  - Rash pustular [Recovering/Resolving]

NARRATIVE: CASE EVENT DATE: 20191108
